FAERS Safety Report 8590346-8 (Version None)
Quarter: 2012Q3

REPORT INFORMATION
  Report Type: 
  Country: None (occurrence: None)
  Receive Date: 20120813
  Receipt Date: 20120806
  Transmission Date: 20120928
  Serious: Yes (Other)
  Sender: FDA-Public Use
  Company Number: JP-JNJFOC-20120710556

PATIENT
  Sex: Female
  Weight: 59 kg

DRUGS (17)
  1. SIMPONI [Suspect]
     Route: 058
     Dates: start: 20120314
  2. PREDNISOLONE [Concomitant]
     Indication: RHEUMATOID ARTHRITIS
  3. LOXONIN [Concomitant]
     Indication: RHEUMATOID ARTHRITIS
     Dates: start: 20120621
  4. EPADEL [Concomitant]
     Route: 048
     Dates: start: 20110316
  5. LANSOPRAZOLE [Concomitant]
     Route: 048
  6. SIMPONI [Suspect]
     Route: 058
     Dates: start: 20120418
  7. SIMPONI [Suspect]
     Route: 058
     Dates: start: 20120523
  8. SIMPONI [Suspect]
     Route: 058
     Dates: start: 20111221
  9. RISEDRONATE SODIUM [Concomitant]
     Route: 048
  10. SIMPONI [Suspect]
     Route: 058
     Dates: start: 20120621
  11. SIMPONI [Suspect]
     Route: 058
     Dates: start: 20120118
  12. METHOTREXATE [Concomitant]
     Indication: RHEUMATOID ARTHRITIS
  13. FOLIC ACID [Concomitant]
     Indication: PROPHYLAXIS
     Route: 048
  14. SIMPONI [Suspect]
     Indication: RHEUMATOID ARTHRITIS
     Route: 058
     Dates: start: 20120215
  15. CELEBREX [Concomitant]
     Indication: RHEUMATOID ARTHRITIS
     Route: 048
     Dates: start: 20111221, end: 20120620
  16. ALFAROL [Concomitant]
     Route: 048
  17. OLMESARTAN MEDOXOMIL [Concomitant]
     Route: 048

REACTIONS (2)
  - VERTIGO [None]
  - MELAENA [None]
